FAERS Safety Report 4644120-5 (Version None)
Quarter: 2005Q2

REPORT INFORMATION
  Report Type: 
  Country: None (occurrence: None)
  Receive Date: 20050425
  Receipt Date: 20050413
  Transmission Date: 20051028
  Serious: Yes (Other)
  Sender: FDA-Public Use
  Company Number: CA-GLAXOSMITHKLINE-A0554298A

PATIENT
  Age: 56 Year
  Sex: Male
  Weight: 95.5 kg

DRUGS (6)
  1. ADVAIR DISKUS 100/50 [Suspect]
     Indication: ASTHMA
     Dosage: 1PUFF TWICE PER DAY
     Route: 055
     Dates: start: 20050323, end: 20050404
  2. PREDNISONE [Concomitant]
     Route: 048
  3. NASONEX [Concomitant]
     Dosage: 2SPR TWICE PER DAY
     Route: 045
     Dates: start: 20050223
  4. CIMETIDINE [Concomitant]
     Dosage: 600MG TWICE PER DAY
     Route: 048
     Dates: start: 20050224
  5. EZETIMIBE [Concomitant]
     Dosage: 10MG PER DAY
     Route: 048
     Dates: start: 20050224
  6. SALBUTAMOL [Concomitant]
     Dosage: 1PUFF AS REQUIRED
     Route: 055
     Dates: start: 20050208

REACTIONS (3)
  - IMPAIRED DRIVING ABILITY [None]
  - LOSS OF CONSCIOUSNESS [None]
  - VISUAL DISTURBANCE [None]
